FAERS Safety Report 17665907 (Version 1)
Quarter: 2020Q2

REPORT INFORMATION
  Report Type: Report from Study
  Country: None (occurrence: CA)
  Receive Date: 20200414
  Receipt Date: 20200414
  Transmission Date: 20200713
  Serious: Yes (Other)
  Sender: FDA-Public Use
  Company Number: CA-ABBVIE-20K-028-3244266-00

PATIENT
  Age: 50 Year
  Sex: Male
  Weight: 73 kg

DRUGS (14)
  1. VEDOLIZUMAB [Concomitant]
     Active Substance: VEDOLIZUMAB
     Indication: CROHN^S DISEASE
     Dates: start: 20200113
  2. ISONIAZID. [Suspect]
     Active Substance: ISONIAZID
     Indication: TUBERCULOSIS
     Route: 065
     Dates: start: 20170717, end: 20180417
  3. ISONIAZID. [Suspect]
     Active Substance: ISONIAZID
     Route: 065
     Dates: start: 20190605
  4. RIFAMPICIN [Suspect]
     Active Substance: RIFAMPIN
     Route: 065
     Dates: start: 20190330, end: 20190603
  5. PYRAZINAMIDE. [Suspect]
     Active Substance: PYRAZINAMIDE
     Indication: TUBERCULOSIS
     Route: 065
     Dates: start: 20190219, end: 20190225
  6. RIFAMPICIN [Suspect]
     Active Substance: RIFAMPIN
     Indication: TUBERCULOSIS
     Route: 065
     Dates: start: 20180219, end: 20180225
  7. PYRIDOXINE [Concomitant]
     Active Substance: PYRIDOXINE
     Indication: PRODUCT USED FOR UNKNOWN INDICATION
     Dates: start: 20170717, end: 20170814
  8. PYRIDOXINE [Concomitant]
     Active Substance: PYRIDOXINE
     Dates: start: 20170815, end: 20180417
  9. PYRIDOXINE [Concomitant]
     Active Substance: PYRIDOXINE
     Dates: start: 20190306, end: 20190311
  10. HUMIRA [Suspect]
     Active Substance: ADALIMUMAB
     Route: 058
     Dates: start: 20181020, end: 20190128
  11. RIFAMPICIN [Suspect]
     Active Substance: RIFAMPIN
     Route: 065
     Dates: start: 20190227, end: 20190311
  12. HUMIRA [Suspect]
     Active Substance: ADALIMUMAB
     Indication: CROHN^S DISEASE
     Route: 058
     Dates: start: 20180317, end: 20181013
  13. ISONIAZID. [Suspect]
     Active Substance: ISONIAZID
     Route: 065
     Dates: start: 20190306, end: 20190311
  14. RIFAMPICIN [Suspect]
     Active Substance: RIFAMPIN
     Route: 065
     Dates: start: 20190605

REACTIONS (12)
  - Fatigue [Unknown]
  - Lymphadenopathy [Unknown]
  - Joint swelling [Unknown]
  - Rash [Unknown]
  - Granulomatous lymphadenitis [Unknown]
  - Lymphadenopathy [Recovered/Resolved]
  - Night sweats [Unknown]
  - Weight decreased [Unknown]
  - Hepatotoxicity [Unknown]
  - Tuberculosis [Recovered/Resolved]
  - Lymphadenopathy [Unknown]
  - Lymphadenopathy [Recovered/Resolved]

NARRATIVE: CASE EVENT DATE: 20190108
